FAERS Safety Report 19367238 (Version 1)
Quarter: 2021Q2

REPORT INFORMATION
  Report Type: Spontaneous
  Country: US (occurrence: US)
  Receive Date: 20210603
  Receipt Date: 20210603
  Transmission Date: 20210717
  Serious: No
  Sender: FDA-Public Use
  Company Number: US-009507513-2105USA001953

PATIENT
  Age: 69 Year
  Sex: Male

DRUGS (7)
  1. MAGNESIUM [Concomitant]
     Active Substance: MAGNESIUM
  2. JANUVIA [Suspect]
     Active Substance: SITAGLIPTIN PHOSPHATE
     Indication: DIABETES MELLITUS
     Dosage: ONE 100 MILLIGRAM TABLET PER DAY
     Route: 048
     Dates: start: 202002
  3. PRINIVIL [Concomitant]
     Active Substance: LISINOPRIL
  4. SIMVASTATIN. [Concomitant]
     Active Substance: SIMVASTATIN
  5. ASPIRINA [Concomitant]
     Active Substance: ASPIRIN
  6. GLIMEPIRIDE. [Concomitant]
     Active Substance: GLIMEPIRIDE
  7. DUAKLIR GENUAIR [Concomitant]
     Active Substance: ACLIDINIUM BROMIDE\FORMOTEROL FUMARATE

REACTIONS (2)
  - Blood glucose increased [Recovering/Resolving]
  - Product dose omission issue [Unknown]

NARRATIVE: CASE EVENT DATE: 20210104
